FAERS Safety Report 5922748-X (Version None)
Quarter: 2008Q3

REPORT INFORMATION
  Report Type: 
  Country: None (occurrence: None)
  Receive Date: 20080909
  Receipt Date: 20080714
  Transmission Date: 20090109
  Serious: Yes (Hospitalization)
  Sender: FDA-Public Use
  Company Number: 163-20785-08070715

PATIENT
  Age: 57 Year
  Sex: Female

DRUGS (1)
  1. THALOMID [Suspect]
     Indication: THYROID CANCER
     Dosage: 400 MG, 2 IN 1 D, ORAL
     Route: 048
     Dates: start: 20030501

REACTIONS (3)
  - PNEUMONIA BACTERIAL [None]
  - RENAL FAILURE ACUTE [None]
  - SYNCOPE [None]
